FAERS Safety Report 7970893-X (Version None)
Quarter: 2011Q4

REPORT INFORMATION
  Report Type: 
  Country: None (occurrence: None)
  Receive Date: 20111212
  Receipt Date: 20111207
  Transmission Date: 20120403
  Serious: Yes (Death, Other)
  Sender: FDA-Public Use
  Company Number: PHHY2011JP099673

PATIENT
  Age: 64 Year
  Sex: Male

DRUGS (1)
  1. EXJADE [Suspect]
     Indication: IRON OVERLOAD
     Dosage: 500 MG, DAILY
     Route: 048
     Dates: start: 20111020, end: 20111102

REACTIONS (5)
  - DISEASE PROGRESSION [None]
  - APHAGIA [None]
  - APLASTIC ANAEMIA [None]
  - ENTEROCOLITIS [None]
  - DIARRHOEA [None]
